FAERS Safety Report 4519186-3 (Version None)
Quarter: 2004Q4

REPORT INFORMATION
  Report Type: 
  Country: None (occurrence: None)
  Receive Date: 20041201
  Receipt Date: 20041115
  Transmission Date: 20050328
  Serious: Yes (Hospitalization)
  Sender: FDA-Public Use
  Company Number: S04-FRA-07473-01

PATIENT
  Age: 59 Year
  Sex: Female

DRUGS (8)
  1. CITALOPRAM HYDROBROMIDE [Suspect]
     Dosage: 20 MG QD PO
     Route: 048
     Dates: start: 20040710, end: 20040724
  2. MODOPAR [Suspect]
     Indication: CATATONIA
     Dates: start: 20040410, end: 20040710
  3. GLUCOPHAGE [Concomitant]
  4. TRANXENE [Concomitant]
  5. ENALAPRIL MALEATE [Concomitant]
  6. ALDALIX [Concomitant]
  7. SPIRONOLACTONE/FUROSEMIDE [Concomitant]
  8. NORMACOL [Concomitant]

REACTIONS (23)
  - AMNESIA [None]
  - COMA [None]
  - CONDITION AGGRAVATED [None]
  - CONFUSIONAL STATE [None]
  - COUGH [None]
  - DISORIENTATION [None]
  - EXTRAPYRAMIDAL DISORDER [None]
  - GENERAL PHYSICAL HEALTH DETERIORATION [None]
  - HAEMATOCRIT DECREASED [None]
  - HAEMOGLOBIN DECREASED [None]
  - HYPOAESTHESIA [None]
  - MENTAL DISORDER [None]
  - MULTIPLE DRUG OVERDOSE [None]
  - MUSCULOSKELETAL STIFFNESS [None]
  - POSTURE ABNORMAL [None]
  - RED BLOOD CELL COUNT DECREASED [None]
  - RENAL FAILURE [None]
  - SEROTONIN SYNDROME [None]
  - SPEECH DISORDER [None]
  - STEREOTYPY [None]
  - THINKING ABNORMAL [None]
  - TREMOR [None]
  - WEIGHT DECREASED [None]
